FAERS Safety Report 5243811-5 (Version None)
Quarter: 2007Q1

REPORT INFORMATION
  Report Type: 
  Country: None (occurrence: None)
  Receive Date: 20070215
  Receipt Date: 20070201
  Transmission Date: 20070707
  Serious: Yes (Hospitalization)
  Sender: FDA-Public Use
  Company Number: 231790

PATIENT
  Age: 75 Year
  Sex: Female

DRUGS (1)
  1. RAPTIVA [Suspect]
     Indication: PSORIASIS
     Dosage: 1 UNK, 1/WEEK; SUBCUTANEOUS
     Route: 058
     Dates: end: 20060821

REACTIONS (11)
  - CHOLELITHIASIS [None]
  - CONDITION AGGRAVATED [None]
  - CONSTIPATION [None]
  - CYST [None]
  - DRUG INEFFECTIVE [None]
  - ESCHERICHIA URINARY TRACT INFECTION [None]
  - HYPERKERATOSIS [None]
  - INFLUENZA LIKE ILLNESS [None]
  - NAIL DISORDER [None]
  - PANCREATITIS ACUTE [None]
  - PSORIASIS [None]
